FAERS Safety Report 5231357-X (Version None)
Quarter: 2007Q1

REPORT INFORMATION
  Report Type: 
  Country: None (occurrence: None)
  Receive Date: 20070206
  Receipt Date: 20070129
  Transmission Date: 20070707
  Serious: Yes (Other)
  Sender: FDA-Public Use
  Company Number: GBWYE415030JAN07

PATIENT
  Sex: Female

DRUGS (2)
  1. PREMIQUE CYCLE [Suspect]
     Dosage: UNKNOWN
     Route: 048
  2. OMEPRAZOLE [Concomitant]
     Dosage: UNKNOWN

REACTIONS (5)
  - CONDITION AGGRAVATED [None]
  - FATIGUE [None]
  - HEADACHE [None]
  - HEART RATE IRREGULAR [None]
  - SLEEP DISORDER [None]
